FAERS Safety Report 7754032-6 (Version None)
Quarter: 2011Q3

REPORT INFORMATION
  Report Type: 
  Country: None (occurrence: None)
  Receive Date: 20110915
  Receipt Date: 20110912
  Transmission Date: 20111222
  Serious: Yes (Other)
  Sender: FDA-Public Use
  Company Number: PHHY2011FR81153

PATIENT
  Age: 28 Year
  Sex: Male

DRUGS (2)
  1. VOLTAREN [Suspect]
     Indication: ARTHRALGIA
     Dosage: 75 MG, 5 OR 6 TABLETS
     Route: 048
     Dates: start: 20110911
  2. VOLTAREN [Suspect]
     Dosage: 6 DF, UNK
     Dates: start: 20110912

REACTIONS (3)
  - OVERDOSE [None]
  - ABDOMINAL PAIN UPPER [None]
  - HEPATIC PAIN [None]
